FAERS Safety Report 5212976-3 (Version None)
Quarter: 2007Q1

REPORT INFORMATION
  Report Type: 
  Country: None (occurrence: None)
  Receive Date: 20070116
  Receipt Date: 20070103
  Transmission Date: 20070707
  Serious: Yes (Hospitalization)
  Sender: FDA-Public Use
  Company Number: GXKR2007GB00464

PATIENT
  Age: 66 Year
  Sex: Male

DRUGS (1)
  1. DICLOFENAC (NGX) (DICLOFENAC) UNKNOWN [Suspect]

REACTIONS (14)
  - ANOREXIA [None]
  - ECTHYMA [None]
  - ERYTHEMA [None]
  - ESCHAR [None]
  - LETHARGY [None]
  - MALAISE [None]
  - NEUTROPENIA [None]
  - NEUTROPHIL COUNT DECREASED [None]
  - OEDEMA [None]
  - PSEUDOMONAS INFECTION [None]
  - SCAR [None]
  - SKIN LESION [None]
  - SKIN NECROSIS [None]
  - WHITE BLOOD CELL COUNT DECREASED [None]
